FAERS Safety Report 9492291 (Version 2)
Quarter: 2013Q3

REPORT INFORMATION
  Report Type: Spontaneous
  Country: PH (occurrence: PH)
  Receive Date: 20130830
  Receipt Date: 20130830
  Transmission Date: 20140515
  Serious: Yes (Other)
  Sender: FDA-Public Use
  Company Number: PH-PFIZER INC-2013211310

PATIENT
  Age: 4 Decade
  Sex: Female

DRUGS (3)
  1. MEDROL [Suspect]
     Indication: DYSPHONIA
     Dosage: 16 MG, 2 TABLETS OD FOR 3 DAYS
     Route: 048
  2. MEDROL [Suspect]
     Dosage: ONCE A DAY FOR 2 DAYS
     Route: 048
  3. MEDROL [Suspect]
     Dosage: 1/2 FOR 6TH AND 7TH DAY
     Route: 048

REACTIONS (4)
  - Dyspnoea [Recovered/Resolved]
  - Panic attack [Recovered/Resolved]
  - Palpitations [Recovered/Resolved]
  - Emotional disorder [Recovered/Resolved]
